FAERS Safety Report 5166464-3 (Version None)
Quarter: 2006Q4

REPORT INFORMATION
  Report Type: 
  Country: None (occurrence: None)
  Receive Date: 20061129
  Receipt Date: 20061116
  Transmission Date: 20070319
  Serious: Yes (Death, Hospitalization, Other)
  Sender: FDA-Public Use
  Company Number: 2006142195

PATIENT
  Age: 72 Year
  Sex: Female

DRUGS (8)
  1. PREDNISOLONE [Suspect]
     Indication: RHEUMATOID ARTHRITIS
     Dosage: 7 MG (7 MG, 1 IN 1 D)
     Dates: start: 20050516, end: 20050529
  2. ENBREL [Suspect]
     Indication: RHEUMATOID ARTHRITIS
     Dosage: 25 MG (25 MG, 2 IN 1 WK), SUBCUTANEOUS
     Route: 058
     Dates: start: 20011101, end: 20051226
  3. VOLTAREN [Suspect]
     Indication: RHEUMATOID ARTHRITIS
     Dosage: 75 MG (75 MG, 1 IN 1 D)
     Dates: start: 20050530, end: 20051228
  4. ADALAT - SLOW RELEASE (NIFEDIPINE) [Concomitant]
  5. CALCIUM LACTATE (CALCIUM LACTATE) [Concomitant]
  6. ALFACALCIDOL (ALFACALCIDOL) [Concomitant]
  7. BLOPRESS (CANDESARTAN CILEXETIL) [Concomitant]
  8. ANTIDEPRESSANTS (ANTIDEPRESSANTS) [Concomitant]

REACTIONS (7)
  - ABASIA [None]
  - ASTHENIA [None]
  - CARDIAC FAILURE [None]
  - DEHYDRATION [None]
  - DEPRESSION [None]
  - MALNUTRITION [None]
  - SUBARACHNOID HAEMORRHAGE [None]
